FAERS Safety Report 7678786-2 (Version None)
Quarter: 2011Q3

REPORT INFORMATION
  Report Type: 
  Country: None (occurrence: None)
  Receive Date: 20110811
  Receipt Date: 20110803
  Transmission Date: 20111222
  Serious: Yes (Other)
  Sender: FDA-Public Use
  Company Number: GB-GENENTECH-322436

PATIENT
  Sex: Female

DRUGS (2)
  1. LUCENTIS [Suspect]
     Indication: PRODUCT USED FOR UNKNOWN INDICATION
     Dosage: UNK
     Route: 031
     Dates: start: 20110125
  2. LUCENTIS [Suspect]
     Dosage: UNK
     Route: 065
     Dates: start: 20110317

REACTIONS (3)
  - EYE INFLAMMATION [None]
  - RETINAL HAEMORRHAGE [None]
  - CORNEAL DISORDER [None]
